FAERS Safety Report 4596925-7 (Version None)
Quarter: 2005Q1

REPORT INFORMATION
  Report Type: 
  Country: None (occurrence: None)
  Receive Date: 20050228
  Receipt Date: 20050215
  Transmission Date: 20050727
  Serious: Yes (Other)
  Sender: FDA-Public Use
  Company Number: 2004103689

PATIENT
  Age: 58 Year
  Sex: Female
  Weight: 66.6788 kg

DRUGS (4)
  1. BEXTRA [Suspect]
     Indication: ARTHRITIS
     Dosage: (1 IN 1 D), ORAL
     Route: 048
     Dates: start: 20030301, end: 20031103
  2. CELEBREX [Suspect]
     Indication: ARTHRITIS
     Dosage: 200 MG (200 MG, 1 IN 1 D), ORAL
     Route: 048
     Dates: start: 20021201, end: 20030101
  3. PRAVASTATIN SODIUM [Concomitant]
  4. LISINOPRIL [Concomitant]

REACTIONS (11)
  - BIOPSY SKIN ABNORMAL [None]
  - BONE PAIN [None]
  - COUGH [None]
  - DRUG INEFFECTIVE [None]
  - RASH [None]
  - RASH ERYTHEMATOUS [None]
  - RASH PRURITIC [None]
  - SCAB [None]
  - SCAR [None]
  - SKIN BURNING SENSATION [None]
  - SKIN TEST POSITIVE [None]
